FAERS Safety Report 23381677 (Version 2)
Quarter: 2025Q1

REPORT INFORMATION
  Report Type: Spontaneous
  Country: US (occurrence: US)
  Receive Date: 20240109
  Receipt Date: 20250109
  Transmission Date: 20250409
  Serious: No
  Sender: TARO
  Company Number: US-TARO PHARMACEUTICALS USA INC.-2023TAR01200

PATIENT

DRUGS (8)
  1. BUTENAFINE HYDROCHLORIDE [Suspect]
     Active Substance: BUTENAFINE HYDROCHLORIDE
     Indication: Tinea pedis
     Route: 061
     Dates: start: 202308
  2. GABAPENTIN [Concomitant]
     Active Substance: GABAPENTIN
     Indication: Radiculopathy
     Route: 065
  3. SIMVASTATIN [Concomitant]
     Active Substance: SIMVASTATIN
     Indication: Product used for unknown indication
     Route: 065
  4. AZELASTINE [Concomitant]
     Active Substance: AZELASTINE
     Indication: Product used for unknown indication
     Route: 065
  5. CALCIUM [Concomitant]
     Active Substance: CALCIUM
     Indication: Product used for unknown indication
     Route: 065
  6. ASPIRIN [Concomitant]
     Active Substance: ASPIRIN
     Indication: Product used for unknown indication
     Dosage: 81 MG, OD
     Route: 065
  7. LORATADINE [Concomitant]
     Active Substance: LORATADINE
     Indication: Product used for unknown indication
     Route: 065
  8. NASONEX [Concomitant]
     Active Substance: MOMETASONE FUROATE
     Indication: Product used for unknown indication
     Route: 065

REACTIONS (7)
  - Sinus disorder [Not Recovered/Not Resolved]
  - Respiratory fume inhalation disorder [Recovering/Resolving]
  - Taste disorder [Not Recovered/Not Resolved]
  - Nausea [Recovering/Resolving]
  - Headache [Recovered/Resolved]
  - Dyspepsia [Not Recovered/Not Resolved]
  - Oropharyngeal pain [Recovered/Resolved]

NARRATIVE: CASE EVENT DATE: 20230801
